FAERS Safety Report 8847273 (Version 4)
Quarter: 2013Q1

REPORT INFORMATION
  Report Type: Report from Study
  Country: US (occurrence: US)
  Receive Date: 20121018
  Receipt Date: 20130215
  Transmission Date: 20140127
  Serious: Yes (Death, Life-Threatening, Hospitalization, Disabling, Other)
  Sender: FDA-Public Use
  Company Number: US-PFIZER INC-2012257401

PATIENT
  Age: 60 Year
  Sex: Male
  Weight: 111 kg

DRUGS (5)
  1. BLINDED THERAPY [Suspect]
     Indication: NON-SMALL CELL LUNG CANCER
     Dosage: UNK
     Route: 030
     Dates: start: 20120605, end: 20120605
  2. AMLODIPINE BESILATE [Suspect]
     Indication: HYPERTENSION
     Dosage: 10 MG, UNK
     Route: 048
     Dates: start: 201010
  3. CLONIDINE [Suspect]
     Indication: HYPERTENSION
     Dosage: 0.2 MG, UNK
     Route: 048
     Dates: start: 20110921
  4. COREG [Suspect]
     Indication: HYPERTENSION
     Dosage: 50 MG, UNK
     Route: 048
     Dates: start: 201010, end: 20120902
  5. LOSARTAN POTASSIUM W/HYDROCHLOROTHIAZIDE [Suspect]
     Indication: HYPERTENSION
     Dosage: UNK
     Route: 048
     Dates: start: 20120827, end: 20120902

REACTIONS (9)
  - Sepsis [Fatal]
  - Hypotension [Not Recovered/Not Resolved]
  - Hypoxia [Not Recovered/Not Resolved]
  - Acute respiratory distress syndrome [Not Recovered/Not Resolved]
  - Anaemia [Not Recovered/Not Resolved]
  - Renal failure acute [Not Recovered/Not Resolved]
  - Atrial fibrillation [Recovered/Resolved]
  - Pneumonia [Not Recovered/Not Resolved]
  - Metabolic alkalosis [Not Recovered/Not Resolved]
